FAERS Safety Report 8405369-9 (Version None)
Quarter: 2012Q2

REPORT INFORMATION
  Report Type: 
  Country: None (occurrence: None)
  Receive Date: 20120604
  Receipt Date: 20120522
  Transmission Date: 20120825
  Serious: Yes (Hospitalization, Other)
  Sender: FDA-Public Use
  Company Number: TR-AMGEN-TURSP2012016512

PATIENT
  Age: 50 Year
  Sex: Male
  Weight: 65 kg

DRUGS (1)
  1. ENBREL [Suspect]
     Indication: RHEUMATOID ARTHRITIS
     Dosage: 50 MG, WEEKLY
     Route: 058
     Dates: start: 20111222, end: 20120120

REACTIONS (11)
  - WEIGHT DECREASED [None]
  - PAIN [None]
  - RASH [None]
  - RECTAL HAEMORRHAGE [None]
  - WOUND [None]
  - OSTEOLYSIS [None]
  - PRURITUS [None]
  - MUSCULAR WEAKNESS [None]
  - HEMIPARESIS [None]
  - BURNING SENSATION [None]
  - GAIT DISTURBANCE [None]
